FAERS Safety Report 17040712 (Version 1)
Quarter: 2019Q4

REPORT INFORMATION
  Report Type: Spontaneous
  Country: JP (occurrence: JP)
  Receive Date: 20191117
  Receipt Date: 20191117
  Transmission Date: 20200122
  Serious: Yes (Hospitalization, Other)
  Sender: FDA-Public Use
  Company Number: NVSC2019JP027039

PATIENT
  Sex: Female

DRUGS (1)
  1. RIVASTACH [Suspect]
     Active Substance: RIVASTIGMINE
     Indication: PRODUCT USED FOR UNKNOWN INDICATION
     Dosage: 6.9 MG, QD (PATCH 7.5 (CM2), RIVASTIGMINE BASE: 13.5 MG)
     Route: 062

REACTIONS (4)
  - Wrong technique in product usage process [Unknown]
  - Overdose [Unknown]
  - Depressed level of consciousness [Recovered/Resolved]
  - Vomiting [Recovered/Resolved]
